FAERS Safety Report 23317512 (Version 3)
Quarter: 2024Q4

REPORT INFORMATION
  Report Type: Spontaneous
  Country: US (occurrence: US)
  Receive Date: 20231219
  Receipt Date: 20241017
  Transmission Date: 20250114
  Serious: No
  Sender: ROCHE
  Company Number: US-ROCHE-3452413

PATIENT
  Age: 36 Year
  Sex: Male

DRUGS (1)
  1. HEMLIBRA [Suspect]
     Active Substance: EMICIZUMAB-KXWH
     Indication: Factor VIII deficiency
     Dosage: 105MG/ 0.7ML
     Route: 058
     Dates: start: 202203

REACTIONS (2)
  - Haemorrhage [Recovered/Resolved]
  - Joint injury [Unknown]

NARRATIVE: CASE EVENT DATE: 20231023
